FAERS Safety Report 17811398 (Version 3)
Quarter: 2020Q4

REPORT INFORMATION
  Report Type: Spontaneous
  Country: US (occurrence: US)
  Receive Date: 20200521
  Receipt Date: 20201102
  Transmission Date: 20210113
  Serious: No
  Sender: FDA-Public Use
  Company Number: US-PFIZER INC-2020199798

PATIENT
  Age: 82 Year
  Sex: Male

DRUGS (3)
  1. LYRICA CR [Suspect]
     Active Substance: PREGABALIN
     Indication: TRIGEMINAL NEURALGIA
     Dosage: 330 MG, DAILY
  2. LYRICA CR [Suspect]
     Active Substance: PREGABALIN
     Dosage: 165 MG, 1X/DAY (1 TABLET AFTER EVERY MEAL ONCE A DAY)
  3. LYRICA CR [Suspect]
     Active Substance: PREGABALIN
     Dosage: 330 MG, 1X/DAY (TWO 165MG TABLETS TOGETHER AFTER DINNER)

REACTIONS (3)
  - Circumstance or information capable of leading to medication error [Unknown]
  - Anxiety [Unknown]
  - Pain in jaw [Unknown]
